FAERS Safety Report 24542595 (Version 3)
Quarter: 2025Q4

REPORT INFORMATION
  Report Type: Spontaneous
  Country: US (occurrence: US)
  Receive Date: 20241024
  Receipt Date: 20251230
  Transmission Date: 20260117
  Serious: Yes (Life-Threatening)
  Sender: TEVA
  Company Number: US-TEVA-VS-3255091

PATIENT
  Age: 45 Year
  Sex: Female

DRUGS (6)
  1. VANCOMYCIN [Suspect]
     Active Substance: VANCOMYCIN
     Indication: Pneumonia klebsiella
     Route: 065
  2. PREDNISONE [Concomitant]
     Active Substance: PREDNISONE
     Indication: Pyoderma gangrenosum
     Route: 065
  3. METRONIDAZOLE [Suspect]
     Active Substance: METRONIDAZOLE
     Indication: Pneumonia klebsiella
     Route: 065
  4. PIPERACILLIN SODIUM\TAZOBACTAM SODIUM [Suspect]
     Active Substance: PIPERACILLIN SODIUM\TAZOBACTAM SODIUM
     Indication: Pneumonia klebsiella
     Route: 065
  5. MYCOPHENOLATE MOFETIL [Concomitant]
     Active Substance: MYCOPHENOLATE MOFETIL
     Indication: Pyoderma gangrenosum
     Route: 065
  6. CEFEPIME [Suspect]
     Active Substance: CEFEPIME HYDROCHLORIDE
     Indication: Pneumonia klebsiella
     Route: 065

REACTIONS (1)
  - Drug ineffective [Unknown]
